FAERS Safety Report 14462174 (Version 2)
Quarter: 2019Q4

REPORT INFORMATION
  Report Type: Spontaneous
  Country: GB (occurrence: GB)
  Receive Date: 20180130
  Receipt Date: 20191114
  Transmission Date: 20200122
  Serious: Yes (Other)
  Sender: FDA-Public Use
  Company Number: GB-PFIZER INC-2018035859

PATIENT
  Age: 52 Year
  Sex: Male
  Weight: 97.97 kg

DRUGS (2)
  1. SUDAFED BLOCKED NOSE [Concomitant]
     Indication: SINONASAL OBSTRUCTION
     Dosage: UNK
     Route: 045
  2. IBUPROFEN. [Suspect]
     Active Substance: IBUPROFEN
     Indication: PAIN
     Dosage: 6 DF, 1X/DAY
     Route: 048
     Dates: start: 20180104, end: 20180108

REACTIONS (4)
  - Incorrect dose administered [Unknown]
  - Insomnia [Recovering/Resolving]
  - Tinnitus [Not Recovered/Not Resolved]
  - Anxiety [Recovering/Resolving]

NARRATIVE: CASE EVENT DATE: 20180104
